FAERS Safety Report 24253817 (Version 2)
Quarter: 2024Q3

REPORT INFORMATION
  Report Type: Report from Study
  Country: IQ (occurrence: IQ)
  Receive Date: 20240827
  Receipt Date: 20240918
  Transmission Date: 20241016
  Serious: Yes (Other)
  Sender: REGENERON
  Company Number: IQ-BAYER-2024A122193

PATIENT
  Age: 69 Year
  Sex: Male

DRUGS (1)
  1. EYLEA [Suspect]
     Active Substance: AFLIBERCEPT
     Indication: Diabetic retinal oedema
     Dosage: 13 DOSE IN EACH EYE (BOTH EYES),INJUCTION,FOR NOW EVERY 3MONTH, SOL FOR INJ, 40 MG/ML
     Dates: start: 202101

REACTIONS (2)
  - Cataract operation [Recovered/Resolved]
  - Epiretinal membrane [Not Recovered/Not Resolved]
